FAERS Safety Report 9570993 (Version 2)
Quarter: 2013Q4

REPORT INFORMATION
  Report Type: Spontaneous
  Country: US (occurrence: US)
  Receive Date: 20131001
  Receipt Date: 20131001
  Transmission Date: 20140711
  Serious: Yes (Other)
  Sender: FDA-Public Use
  Company Number: US-JNJFOC-20130815853

PATIENT
  Sex: Female
  Weight: 108.86 kg

DRUGS (6)
  1. NUCYNTA [Suspect]
     Indication: BACK PAIN
     Dosage: ONCE A DAY
     Route: 048
     Dates: start: 20130610, end: 20130918
  2. NUCYNTA [Suspect]
     Indication: BACK PAIN
     Dosage: ONCE A DAY
     Route: 048
     Dates: start: 2011
  3. GABAPENTIN [Concomitant]
     Indication: BACK PAIN
     Route: 048
     Dates: start: 2011
  4. GABAPENTIN [Concomitant]
     Indication: NERVE INJURY
     Route: 048
     Dates: start: 2011
  5. CYMBALTA [Concomitant]
     Indication: DEPRESSION
     Route: 065
  6. ABILIFY [Concomitant]
     Indication: ANXIETY
     Route: 065

REACTIONS (3)
  - Bruxism [Recovered/Resolved]
  - Tooth fracture [Recovered/Resolved]
  - Dyskinesia [Not Recovered/Not Resolved]
